FAERS Safety Report 8357206-9 (Version None)
Quarter: 2012Q2

REPORT INFORMATION
  Report Type: 
  Country: None (occurrence: None)
  Receive Date: 20120514
  Receipt Date: 20120505
  Transmission Date: 20120825
  Serious: Yes (Hospitalization)
  Sender: FDA-Public Use
  Company Number: DE-ROCHE-1066590

PATIENT
  Age: 46 Year
  Sex: Male
  Weight: 110 kg

DRUGS (4)
  1. ENALAPRIL MALEATE [Concomitant]
     Route: 048
  2. TELAPREVIR [Suspect]
     Indication: HEPATITIS C
     Route: 048
     Dates: start: 20120322
  3. COPEGUS [Suspect]
     Indication: HEPATITIS C
     Route: 048
     Dates: start: 20120322
  4. PEGASYS [Suspect]
     Indication: HEPATITIS C
     Route: 058
     Dates: start: 20120322

REACTIONS (2)
  - SINUSITIS [None]
  - SYNCOPE [None]
